FAERS Safety Report 14524728 (Version 1)
Quarter: 2018Q1

REPORT INFORMATION
  Report Type: Spontaneous
  Country: IT (occurrence: IT)
  Receive Date: 20180213
  Receipt Date: 20180213
  Transmission Date: 20180509
  Serious: Yes (Death, Hospitalization, Other)
  Sender: FDA-Public Use
  Company Number: IT-ACCORD-063341

PATIENT
  Age: 23 Year
  Sex: Male
  Weight: 74 kg

DRUGS (3)
  1. MITOXANTRONE [Suspect]
     Active Substance: MITOXANTRONE HYDROCHLORIDE
     Indication: ACUTE LYMPHOCYTIC LEUKAEMIA
     Dosage: 10.5 MG, CYCLIC (DAYS 1-6)
     Dates: start: 20171103, end: 20171108
  2. CYTARABINE/CYTARABINE HYDROCHLORIDE/CYTARABINE OCFOSFATE [Suspect]
     Active Substance: CYTARABINE
     Indication: ACUTE LYMPHOCYTIC LEUKAEMIA
     Dosage: CYCLIC (DAYS 1-6)
     Dates: start: 20171103, end: 20171108
  3. ETOPOSIDE. [Suspect]
     Active Substance: ETOPOSIDE
     Indication: ACUTE LYMPHOCYTIC LEUKAEMIA
     Dosage: (DAYS 1-6)
     Dates: start: 20171103, end: 20171108

REACTIONS (5)
  - Hypertensive hydrocephalus [Unknown]
  - Coma [Unknown]
  - Bone marrow failure [Unknown]
  - Neoplasm recurrence [Fatal]
  - Acute lymphocytic leukaemia [None]

NARRATIVE: CASE EVENT DATE: 20171130
